FAERS Safety Report 12240500 (Version 1)
Quarter: 2016Q2

REPORT INFORMATION
  Report Type: Spontaneous
  Country: US (occurrence: US)
  Receive Date: 20160405
  Receipt Date: 20160405
  Transmission Date: 20160815
  Serious: Yes (Death, Hospitalization)
  Sender: FDA-Public Use
  Company Number: US-PFIZER INC-2016158997

PATIENT
  Age: 6 Year
  Sex: Female

DRUGS (8)
  1. CHLOROMYCETIN [Suspect]
     Active Substance: CHLORAMPHENICOL
     Dosage: 23 CAPSULES, 250 MG EACH
     Dates: start: 195012
  2. CORTISONE [Concomitant]
     Active Substance: CORTISONE\HYDROCORTISONE
     Indication: ASTHMA
     Dosage: UNK
     Dates: start: 195012
  3. ACTH [Concomitant]
     Active Substance: CORTICOTROPIN
     Indication: ASTHMA
     Dosage: UNK
     Dates: start: 195012
  4. CHLOROMYCETIN [Suspect]
     Active Substance: CHLORAMPHENICOL
     Dosage: 13 MORE CAPSULES
     Dates: start: 19510112, end: 19510119
  5. ACTH [Concomitant]
     Active Substance: CORTICOTROPIN
     Dosage: UNK
     Dates: start: 195101
  6. CHLOROMYCETIN [Suspect]
     Active Substance: CHLORAMPHENICOL
     Indication: ASTHMA
     Dosage: FIVE CAPSULED, 250 MG, EACH, OVER A TWO DAY PERIOD
     Dates: start: 194911
  7. CHLOROMYCETIN [Suspect]
     Active Substance: CHLORAMPHENICOL
     Dosage: 250 MG, 3X/DAY
     Dates: start: 19510119, end: 19510316
  8. ACTH [Concomitant]
     Active Substance: CORTICOTROPIN
     Dosage: UNK
     Dates: start: 1951

REACTIONS (2)
  - Sepsis [Fatal]
  - Aplastic anaemia [Fatal]
